FAERS Safety Report 18522227 (Version 1)
Quarter: 2020Q4

REPORT INFORMATION
  Report Type: Spontaneous
  Country: US (occurrence: US)
  Receive Date: 20201119
  Receipt Date: 20201119
  Transmission Date: 20210114
  Serious: No
  Sender: FDA-Public Use
  Company Number: US-HORIZON-2020HZN01340

PATIENT
  Sex: Female

DRUGS (1)
  1. TEPEZZA [Suspect]
     Active Substance: TEPROTUMUMAB-TRBW
     Indication: ENDOCRINE OPHTHALMOPATHY
     Route: 050

REACTIONS (11)
  - Tinnitus [Unknown]
  - Headache [Unknown]
  - Dizziness [Unknown]
  - Dry skin [Unknown]
  - Eye pruritus [Unknown]
  - Fatigue [Unknown]
  - Ocular hyperaemia [Unknown]
  - Dysacusis [Unknown]
  - Ocular discomfort [Unknown]
  - Epistaxis [Unknown]
  - Mucosal inflammation [Unknown]
